FAERS Safety Report 10792900 (Version 1)
Quarter: 2015Q1

REPORT INFORMATION
  Report Type: Spontaneous
  Country: RU (occurrence: RU)
  Receive Date: 20150213
  Receipt Date: 20150213
  Transmission Date: 20150721
  Serious: Yes (Death, Hospitalization)
  Sender: FDA-Public Use
  Company Number: RU-ABBVIE-15P-251-1346930-00

PATIENT
  Age: 4 Month
  Sex: Female

DRUGS (2)
  1. TOPAMAX [Concomitant]
     Active Substance: TOPIRAMATE
     Indication: PRODUCT USED FOR UNKNOWN INDICATION
     Dates: start: 201501
  2. DEPAKINE [Suspect]
     Active Substance: VALPROATE SODIUM
     Indication: EPILEPSY
     Route: 048
     Dates: start: 201412

REACTIONS (4)
  - Epilepsy [Fatal]
  - Dyspnoea [Unknown]
  - Aplastic anaemia [Fatal]
  - Rhinorrhoea [Unknown]

NARRATIVE: CASE EVENT DATE: 201412
